FAERS Safety Report 7917042-1 (Version None)
Quarter: 2011Q4

REPORT INFORMATION
  Report Type: 
  Country: None (occurrence: None)
  Receive Date: 20111114
  Receipt Date: 20111103
  Transmission Date: 20120403
  Serious: Yes (Death, Congenital Anomaly)
  Sender: FDA-Public Use
  Company Number: 126114

PATIENT
  Age: 35 Year
  Sex: Female

DRUGS (2)
  1. ALLOPURINOL [Suspect]
     Indication: NEPHROLITHIASIS
     Dosage: 300MG/DAY
  2. ALLOPURINOL [Suspect]
     Indication: PROPHYLAXIS
     Dosage: 300MG/DAY

REACTIONS (23)
  - HYPERTELORISM OF ORBIT [None]
  - OPTIC ATROPHY [None]
  - ACCESSORY SPLEEN [None]
  - CAESAREAN SECTION [None]
  - PULMONARY HYPOPLASIA [None]
  - KIDNEY ENLARGEMENT [None]
  - DIAPHRAGMATIC APLASIA [None]
  - SINGLE FUNCTIONAL KIDNEY [None]
  - MATERNAL DRUGS AFFECTING FOETUS [None]
  - HYDROCEPHALUS [None]
  - DIAPHRAGMATIC HERNIA [None]
  - MICROTIA [None]
  - CRYPTORCHISM [None]
  - NEONATAL RESPIRATORY FAILURE [None]
  - CLEFT LIP AND PALATE [None]
  - EXTERNAL AUDITORY CANAL ATRESIA [None]
  - CARDIAC FAILURE [None]
  - MICROGNATHIA [None]
  - MICROPHTHALMOS [None]
  - COLOBOMA [None]
  - ACROCHORDON [None]
  - CONGENITAL CENTRAL NERVOUS SYSTEM ANOMALY [None]
  - GASTRIC DISORDER [None]
